FAERS Safety Report 23024180 (Version 1)
Quarter: 2023Q4

REPORT INFORMATION
  Report Type: Spontaneous
  Country: NO (occurrence: NO)
  Receive Date: 20231004
  Receipt Date: 20231004
  Transmission Date: 20240110
  Serious: Yes (Hospitalization, Other)
  Sender: FDA-Public Use
  Company Number: None

PATIENT
  Age: 64 Year
  Sex: Female

DRUGS (3)
  1. LEVOTHYROXINE SODIUM [Concomitant]
     Active Substance: LEVOTHYROXINE SODIUM
     Indication: Hypothyroidism
     Dosage: 100 ?G, QD
  2. WEGOVY [Suspect]
     Active Substance: SEMAGLUTIDE
     Indication: Obesity
     Dosage: 1.7
     Route: 058
     Dates: start: 20230329
  3. WEGOVY [Suspect]
     Active Substance: SEMAGLUTIDE
     Dosage: 2.4
     Route: 058
     Dates: end: 20230817

REACTIONS (1)
  - Obstructive pancreatitis [Recovering/Resolving]

NARRATIVE: CASE EVENT DATE: 20230817
